FAERS Safety Report 9456742 (Version 2)
Quarter: 2013Q4

REPORT INFORMATION
  Report Type: Spontaneous
  Country: DE (occurrence: None)
  Receive Date: 20130809
  Receipt Date: 20131021
  Transmission Date: 20140711
  Serious: Yes (Death, Life-Threatening, Hospitalization)
  Sender: FDA-Public Use
  Company Number: 1308-1016

PATIENT
  Age: 59 Year
  Sex: Male
  Weight: 72 kg

DRUGS (5)
  1. VEGF TRAP-EYE [Suspect]
     Indication: DIABETIC RETINAL OEDEMA
     Dosage: 2 MG , 1 IN 4 WEEKS INTRAOCULAR
     Route: 031
     Dates: start: 20120312, end: 20130705
  2. METFORMIN (METFORMIN) [Concomitant]
  3. HUMALOG MIX (HUMALOG MIX) [Concomitant]
  4. SIMVASTATINA DAVUR (SIMVAASTATIN) [Concomitant]
  5. ENALAPRIL [Concomitant]

REACTIONS (1)
  - Myocardial infarction [None]
